FAERS Safety Report 16841619 (Version 1)
Quarter: 2019Q3

REPORT INFORMATION
  Report Type: Spontaneous
  Country: US (occurrence: US)
  Receive Date: 20190923
  Receipt Date: 20190923
  Transmission Date: 20191005
  Serious: No
  Sender: FDA-Public Use
  Company Number: US-ASSERTIO THERAPEUTICS, INC.-US-2019DEP000035

PATIENT
  Sex: Male
  Weight: 76.19 kg

DRUGS (3)
  1. GRALISE [Suspect]
     Active Substance: GABAPENTIN
     Indication: VASCULAR OCCLUSION
     Dosage: 3 PILLS IN AM, 3 PILLS IN PM
     Route: 048
     Dates: start: 2018
  2. GRALISE [Suspect]
     Active Substance: GABAPENTIN
     Dosage: 4 OR 5 PILLS IN THE AM AND PM
     Route: 048
  3. GRALISE [Suspect]
     Active Substance: GABAPENTIN
     Dosage: ONE PILL IN THE AM AND ONE PILL IN THE PM
     Dates: start: 201901

REACTIONS (3)
  - Intentional overdose [Unknown]
  - Malaise [Not Recovered/Not Resolved]
  - Product use in unapproved indication [Unknown]

NARRATIVE: CASE EVENT DATE: 2018
